FAERS Safety Report 6615006-1 (Version None)
Quarter: 2010Q1

REPORT INFORMATION
  Report Type: 
  Country: None (occurrence: None)
  Receive Date: 20100226
  Receipt Date: 20100215
  Transmission Date: 20100710
  Serious: Yes (Other)
  Sender: FDA-Public Use
  Company Number: DE-1180838

PATIENT
  Age: 72 Year
  Sex: Female

DRUGS (2)
  1. AZOPT [Suspect]
     Dosage: OPHTHALMIC
     Route: 047
  2. XALATAN [Concomitant]

REACTIONS (2)
  - OPTIC NERVE DISORDER [None]
  - VISUAL ACUITY REDUCED [None]
